FAERS Safety Report 16403264 (Version 1)
Quarter: 2019Q2

REPORT INFORMATION
  Report Type: Spontaneous
  Country: PT (occurrence: PT)
  Receive Date: 20190607
  Receipt Date: 20190607
  Transmission Date: 20190711
  Serious: Yes (Hospitalization)
  Sender: FDA-Public Use
  Company Number: PT-ACCORD-131828

PATIENT
  Age: 86 Year
  Sex: Female
  Weight: 58 kg

DRUGS (11)
  1. AMIODARONE [Concomitant]
     Active Substance: AMIODARONE
  2. CANDESARTAN/HYDROCHLOROTHIAZIDE [Concomitant]
  3. CLOPIDOGREL [Concomitant]
     Active Substance: CLOPIDOGREL BISULFATE
  4. CARBOPLATIN HIKMA [Suspect]
     Active Substance: CARBOPLATIN
     Indication: LUNG NEOPLASM MALIGNANT
     Dosage: 240 MG IN D1 OF THE 21-DAY CYCLE
     Route: 042
     Dates: start: 20190402, end: 20190415
  5. PANTOPRAZOLE [Concomitant]
     Active Substance: PANTOPRAZOLE
  6. BETAHISTINE [Concomitant]
     Active Substance: BETAHISTINE
  7. LORAZEPAM. [Concomitant]
     Active Substance: LORAZEPAM
  8. PARACETAMOL [Concomitant]
     Active Substance: ACETAMINOPHEN
  9. ALENDRONATE SODIUM/ALENDRONIC ACID [Concomitant]
  10. GEMCITABINE ACCORD [Suspect]
     Active Substance: GEMCITABINE HYDROCHLORIDE
     Indication: LUNG NEOPLASM MALIGNANT
     Dosage: 1400 MG IN D1 AND D8 IN THE 21 DAY CYCLE
     Route: 042
     Dates: start: 20190402, end: 20190415
  11. FUROSEMIDE. [Concomitant]
     Active Substance: FUROSEMIDE

REACTIONS (3)
  - Normocytic anaemia [Not Recovered/Not Resolved]
  - Haemorrhagic stroke [Recovering/Resolving]
  - Thrombocytopenia [Not Recovered/Not Resolved]

NARRATIVE: CASE EVENT DATE: 20190415
